FAERS Safety Report 19097303 (Version 1)
Quarter: 2021Q2

REPORT INFORMATION
  Report Type: Spontaneous
  Country: US (occurrence: US)
  Receive Date: 20210406
  Receipt Date: 20210406
  Transmission Date: 20210717
  Serious: Yes (Hospitalization)
  Sender: FDA-Public Use
  Company Number: None

PATIENT
  Age: 24 Year
  Sex: Male

DRUGS (1)
  1. PULMOZYME [Suspect]
     Active Substance: DORNASE ALFA
     Indication: PNEUMONIA
     Dosage: ?          OTHER ROUTE:INHALATION?
     Dates: start: 201604

REACTIONS (2)
  - Skin infection [None]
  - Pneumonia [None]

NARRATIVE: CASE EVENT DATE: 20210219
